FAERS Safety Report 23481347 (Version 1)
Quarter: 2024Q1

REPORT INFORMATION
  Report Type: Spontaneous
  Country: US (occurrence: None)
  Receive Date: 20240202
  Receipt Date: 20240202
  Transmission Date: 20240410
  Serious: No
  Sender: FDA-Public Use
  Company Number: None

PATIENT
  Age: 21 Year
  Sex: Male
  Weight: 61.2 kg

DRUGS (4)
  1. RISPERIDONE [Suspect]
     Active Substance: RISPERIDONE
     Indication: Schizophrenia
     Dosage: OTHER FREQUENCY : MONTHLY;?
     Route: 058
     Dates: start: 20240125, end: 20240131
  2. RISPERIDONE [Concomitant]
     Active Substance: RISPERIDONE
  3. olanzapine oral [Concomitant]
  4. risperidone subcutaneous [Concomitant]

REACTIONS (1)
  - Retrograde ejaculation [None]

NARRATIVE: CASE EVENT DATE: 20240131
